FAERS Safety Report 13088274 (Version 1)
Quarter: 2017Q1

REPORT INFORMATION
  Report Type: Spontaneous
  Country: US (occurrence: US)
  Receive Date: 20170104
  Receipt Date: 20170104
  Transmission Date: 20170428
  Serious: Yes (Other)
  Sender: FDA-Public Use
  Company Number: None

PATIENT
  Age: 69 Year
  Sex: Female
  Weight: 43.65 kg

DRUGS (1)
  1. TRIMETHOPRIM/SULFA [Suspect]
     Active Substance: SULFAMETHOXAZOLE\TRIMETHOPRIM
     Indication: URINARY TRACT INFECTION
     Route: 053
     Dates: start: 20160825, end: 20160825

REACTIONS (1)
  - Rash [None]

NARRATIVE: CASE EVENT DATE: 20160825
